FAERS Safety Report 4668581-0 (Version None)
Quarter: 2005Q2

REPORT INFORMATION
  Report Type: 
  Country: None (occurrence: None)
  Receive Date: 20050523
  Receipt Date: 20050511
  Transmission Date: 20051028
  Serious: Yes (Other)
  Sender: FDA-Public Use
  Company Number: US-BRISTOL-MYERS SQUIBB COMPANY-12964656

PATIENT
  Age: 43 Year
  Sex: Male

DRUGS (10)
  1. DIDANOSINE [Suspect]
     Indication: HIV INFECTION
     Route: 048
     Dates: start: 20030201, end: 20040701
  2. VIREAD [Suspect]
     Route: 048
     Dates: start: 20030201, end: 20040701
  3. KALETRA [Concomitant]
  4. NEVIRAPINE [Concomitant]
  5. BACTRIM DS [Concomitant]
  6. GABAPENTIN [Concomitant]
  7. CLONAZEPAM [Concomitant]
  8. ESCITALOPRAM OXALATE [Concomitant]
  9. DILAUDID [Concomitant]
  10. MARINOL [Concomitant]

REACTIONS (4)
  - BLOOD CREATININE INCREASED [None]
  - BLOOD LACTIC ACID INCREASED [None]
  - FANCONI SYNDROME [None]
  - PANCREATITIS [None]
